FAERS Safety Report 6653146-1 (Version None)
Quarter: 2010Q1

REPORT INFORMATION
  Report Type: 
  Country: None (occurrence: None)
  Receive Date: 20100326
  Receipt Date: 20100318
  Transmission Date: 20100710
  Serious: Yes (Hospitalization, Disabling)
  Sender: FDA-Public Use
  Company Number: US-BAYER-201012466NA

PATIENT
  Age: 64 Year
  Sex: Male

DRUGS (2)
  1. NEXAVAR [Suspect]
     Indication: HEPATIC NEOPLASM MALIGNANT
     Dosage: TOTAL DAILY DOSE: 800 MG  UNIT DOSE: 200 MG
     Route: 048
     Dates: start: 20100118, end: 20100218
  2. SIMVASTATIN [Concomitant]
     Indication: BLOOD CHOLESTEROL ABNORMAL

REACTIONS (6)
  - COORDINATION ABNORMAL [None]
  - DIARRHOEA [None]
  - DRUG HYPERSENSITIVITY [None]
  - DRY SKIN [None]
  - GAIT DISTURBANCE [None]
  - MUSCULAR WEAKNESS [None]
